FAERS Safety Report 20608588 (Version 1)
Quarter: 2022Q1

REPORT INFORMATION
  Report Type: Spontaneous
  Country: GB (occurrence: GB)
  Receive Date: 20220317
  Receipt Date: 20220317
  Transmission Date: 20220423
  Serious: Yes (Other)
  Sender: FDA-Public Use
  Company Number: None

PATIENT
  Age: 50 Year
  Sex: Male
  Weight: 98 kg

DRUGS (2)
  1. AMLODIPINE [Suspect]
     Active Substance: AMLODIPINE BESYLATE
     Indication: Product used for unknown indication
  2. COVID-19 VACCINE [Concomitant]
     Route: 030
     Dates: start: 20220111, end: 20220111

REACTIONS (2)
  - Suicidal ideation [Recovering/Resolving]
  - Condition aggravated [Unknown]
